FAERS Safety Report 17604293 (Version 2)
Quarter: 2020Q2

REPORT INFORMATION
  Report Type: Spontaneous
  Country: US (occurrence: US)
  Receive Date: 20200331
  Receipt Date: 20200527
  Transmission Date: 20200713
  Serious: Yes (Hospitalization, Other)
  Sender: FDA-Public Use
  Company Number: US-JNJFOC-20200333534

PATIENT
  Age: 50 Year
  Sex: Male

DRUGS (2)
  1. INVOKANA [Suspect]
     Active Substance: CANAGLIFLOZIN
     Indication: TYPE 2 DIABETES MELLITUS
     Dosage: WITH VARYING DOSES OF 100 AND 300 MG
     Route: 048
  2. INVOKAMET [Suspect]
     Active Substance: CANAGLIFLOZIN\METFORMIN HYDROCHLORIDE
     Indication: TYPE 2 DIABETES MELLITUS
     Dosage: 150 TO 1000 MG
     Route: 048

REACTIONS (5)
  - Skin ulcer [Recovering/Resolving]
  - Osteomyelitis [Recovering/Resolving]
  - Toe amputation [Recovering/Resolving]
  - Diabetic ketoacidosis [Unknown]
  - Arthritis bacterial [Unknown]

NARRATIVE: CASE EVENT DATE: 20160915
